FAERS Safety Report 6644232-0 (Version None)
Quarter: 2010Q1

REPORT INFORMATION
  Report Type: 
  Country: None (occurrence: None)
  Receive Date: 20100319
  Receipt Date: 20100319
  Transmission Date: 20100710
  Serious: No
  Sender: FDA-Public Use
  Company Number: None

PATIENT
  Sex: Female
  Weight: 68.0396 kg

DRUGS (1)
  1. CHORIOGONADOTROPIN ALFA MDV 10,000 UNITS [Suspect]
     Indication: INFERTILITY FEMALE
     Dosage: 0.2ML QD SQ
     Route: 058
     Dates: start: 20100318

REACTIONS (2)
  - INCORRECT DOSE ADMINISTERED [None]
  - MEDICATION ERROR [None]
